FAERS Safety Report 4579742-3 (Version None)
Quarter: 2005Q1

REPORT INFORMATION
  Report Type: 
  Country: None (occurrence: None)
  Receive Date: 20050210
  Receipt Date: 20050127
  Transmission Date: 20050727
  Serious: No
  Sender: FDA-Public Use
  Company Number: 2005AC00177

PATIENT
  Sex: Male

DRUGS (1)
  1. MERONEM [Suspect]

REACTIONS (1)
  - EPILEPSY [None]
